FAERS Safety Report 16134632 (Version 1)
Quarter: 2019Q1

REPORT INFORMATION
  Report Type: Spontaneous
  Country: US (occurrence: US)
  Receive Date: 20190329
  Receipt Date: 20190329
  Transmission Date: 20190418
  Serious: No
  Sender: FDA-Public Use
  Company Number: US-TEVA-2019-US-1021373

PATIENT
  Sex: Female

DRUGS (1)
  1. BUPRENORPHINE. [Suspect]
     Active Substance: BUPRENORPHINE
     Indication: ARTHRALGIA
     Dosage: DOSE STRENGTH 20 MCG/HR
     Route: 061
     Dates: start: 201902

REACTIONS (3)
  - Product adhesion issue [Unknown]
  - Product administered at inappropriate site [Unknown]
  - Drug ineffective [Unknown]
